FAERS Safety Report 24644920 (Version 1)
Quarter: 2024Q4

REPORT INFORMATION
  Report Type: Other
  Country: CA (occurrence: CA)
  Receive Date: 20241121
  Receipt Date: 20241121
  Transmission Date: 20250115
  Serious: Yes (Death, Other)
  Sender: CELLTRION
  Company Number: CA-CELLTRION INC.-2024CA028482

PATIENT

DRUGS (2)
  1. BEVACIZUMAB [Suspect]
     Active Substance: BEVACIZUMAB
     Indication: Brain stem glioma
     Dosage: 7.5 MG/KG, 1 EVERY 2 WEEKS
     Route: 042
  2. DEXAMETHASONE [Concomitant]
     Active Substance: DEXAMETHASONE
     Indication: Brain stem glioma
     Dosage: 1.0 MILLIGRAM, 2 EVERY 1 DAYS
     Route: 048

REACTIONS (3)
  - Brain stem glioma [Fatal]
  - Off label use [Fatal]
  - Intentional product use issue [Unknown]
